FAERS Safety Report 21830771 (Version 2)
Quarter: 2023Q1

REPORT INFORMATION
  Report Type: Report from Study
  Country: US (occurrence: US)
  Receive Date: 20230106
  Receipt Date: 20230209
  Transmission Date: 20230418
  Serious: Yes (Other)
  Sender: FDA-Public Use
  Company Number: US-ABBVIE-4257687

PATIENT
  Age: 63 Year
  Sex: Male

DRUGS (2)
  1. HUMIRA [Suspect]
     Active Substance: ADALIMUMAB
     Indication: Rheumatoid arthritis
     Route: 058
     Dates: start: 20211026
  2. HUMIRA [Suspect]
     Active Substance: ADALIMUMAB
     Route: 058
     Dates: start: 202210

REACTIONS (4)
  - Knee arthroplasty [Recovering/Resolving]
  - Blood glucose abnormal [Recovering/Resolving]
  - Joint swelling [Recovering/Resolving]
  - Back disorder [Recovering/Resolving]

NARRATIVE: CASE EVENT DATE: 20220901
